FAERS Safety Report 5187724-6 (Version None)
Quarter: 2006Q4

REPORT INFORMATION
  Report Type: 
  Country: None (occurrence: None)
  Receive Date: 20061221
  Receipt Date: 20060120
  Transmission Date: 20070319
  Serious: Yes (Life-Threatening, Hospitalization, Other)
  Sender: FDA-Public Use
  Company Number: NO-BRISTOL-MYERS SQUIBB COMPANY-13258330

PATIENT
  Age: 49 Year
  Sex: Female

DRUGS (8)
  1. GLUCOPHAGE [Suspect]
     Indication: DIABETES MELLITUS
     Route: 048
     Dates: end: 20050203
  2. IBUMETIN [Concomitant]
     Indication: BACK PAIN
     Route: 048
     Dates: start: 20050203, end: 20050203
  3. RENITEC COMP [Concomitant]
     Dates: end: 20050203
  4. AMARYL [Concomitant]
     Indication: DIABETES MELLITUS
     Route: 048
     Dates: end: 20050203
  5. LEVAXIN [Concomitant]
     Dosage: 0.8571
  6. CARDURA [Concomitant]
     Route: 048
  7. LOSARTAN POTASSIUM [Concomitant]
     Indication: HYPERTENSION
  8. HYDROCHLOROTHIAZIDE [Concomitant]

REACTIONS (7)
  - BACK PAIN [None]
  - CIRCULATORY COLLAPSE [None]
  - GASTROENTERITIS [None]
  - HYPOGLYCAEMIA [None]
  - LACTIC ACIDOSIS [None]
  - PRESCRIBED OVERDOSE [None]
  - RENAL FAILURE [None]
